FAERS Safety Report 4854177-4 (Version None)
Quarter: 2005Q4

REPORT INFORMATION
  Report Type: 
  Country: None (occurrence: None)
  Receive Date: 20051213
  Receipt Date: 20051129
  Transmission Date: 20060501
  Serious: Yes (Other)
  Sender: FDA-Public Use
  Company Number: 2005S1000255

PATIENT
  Age: 49 Year
  Sex: Female
  Weight: 95 kg

DRUGS (3)
  1. CUBICIN [Suspect]
     Indication: WOUND INFECTION STAPHYLOCOCCAL
     Dosage: 680 MG; Q24H; IV
     Route: 042
     Dates: start: 20050831, end: 20050929
  2. CIPROFLOXACIN [Concomitant]
  3. CEFEPIME [Concomitant]

REACTIONS (1)
  - RENAL TUBULAR NECROSIS [None]
